FAERS Safety Report 13595158 (Version 16)
Quarter: 2018Q1

REPORT INFORMATION
  Report Type: Report from Study
  Country: GB (occurrence: GB)
  Receive Date: 20170531
  Receipt Date: 20180217
  Transmission Date: 20180508
  Serious: Yes (Death, Hospitalization)
  Sender: FDA-Public Use
  Company Number: GB-ROCHE-1937738

PATIENT
  Age: 64 Year
  Sex: Male
  Weight: 93.5 kg

DRUGS (18)
  1. DALTEPARIN [Concomitant]
     Active Substance: DALTEPARIN
     Dosage: DOSE: 15,000 UNIT
     Route: 058
     Dates: start: 20170501, end: 20170531
  2. LAXIDO [Concomitant]
     Active Substance: POLYETHYLENE GLYCOL 3350\POTASSIUM CHLORIDE\SODIUM BICARBONATE\SODIUM CHLORIDE
     Indication: CONSTIPATION
     Dosage: DOSE: 1 SACHET.
     Route: 048
     Dates: start: 20170512, end: 20170531
  3. PEPTAC (CALCIUM CARBONATE/SODIUM ALGINATE/SODIUM BICARBONATE) [Concomitant]
     Indication: DYSPEPSIA
     Route: 048
     Dates: start: 20170515, end: 20170531
  4. CYCLIZINE [Concomitant]
     Active Substance: CYCLIZINE
     Indication: NAUSEA
     Route: 048
     Dates: start: 20170518, end: 20170531
  5. MIDAZOLAM [Concomitant]
     Active Substance: MIDAZOLAM HYDROCHLORIDE
     Indication: PALLIATIVE CARE
     Dosage: CONTINUOUS INFUSION
     Route: 058
     Dates: start: 20170531, end: 20170602
  6. AMOROLFINE [Concomitant]
     Active Substance: AMOROLFINE
     Dosage: 1 APPLICATION, LACQUER
     Route: 061
     Dates: end: 20170531
  7. CO-AMOXICLAV [Concomitant]
     Active Substance: AMOXICILLIN\CLAVULANIC ACID
     Route: 048
     Dates: start: 20170515, end: 20170523
  8. LEVOMEPROMAZINE [Concomitant]
     Active Substance: LEVOMEPROMAZINE
     Indication: PALLIATIVE CARE
     Dosage: CONTINUOUS INFUSION
     Route: 058
     Dates: start: 20170531, end: 20170602
  9. PARACETAMOL [Concomitant]
     Active Substance: ACETAMINOPHEN
     Route: 048
     Dates: start: 20170501, end: 20170531
  10. OMEPRAZOLE. [Concomitant]
     Active Substance: OMEPRAZOLE
     Indication: DYSPEPSIA
     Route: 048
     Dates: start: 20170521, end: 20170531
  11. ATEZOLIZUMAB. [Suspect]
     Active Substance: ATEZOLIZUMAB
     Indication: MALIGNANT URINARY TRACT NEOPLASM
     Dosage: DATE OF MOST RECENT DOSE OF STUDY DRUG PRIOR TO AE ONSET 04/MAY/2017
     Route: 042
     Dates: start: 20170504
  12. DOMPERIDONE [Concomitant]
     Active Substance: DOMPERIDONE
     Indication: NAUSEA
     Route: 048
     Dates: start: 20170524, end: 20170531
  13. OXYCODONE [Concomitant]
     Active Substance: OXYCODONE
     Indication: PALLIATIVE CARE
     Dosage: CONTINUOUS INFUSION
     Route: 058
     Dates: start: 20170531, end: 20170602
  14. ALBUMIN [Concomitant]
     Active Substance: ALBUMIN HUMAN
     Indication: ASCITES
     Dosage: DOSE: 1 INFUSION SOLUTION
     Route: 042
     Dates: start: 20170512, end: 20170513
  15. PIPERACILLIN/TAZOBACTAM [Concomitant]
     Active Substance: PIPERACILLIN SODIUM\TAZOBACTAM SODIUM
     Indication: INFECTION
     Route: 042
     Dates: start: 20170512, end: 20170513
  16. CO-AMOXICLAV [Concomitant]
     Active Substance: AMOXICILLIN\CLAVULANIC ACID
     Indication: INFECTION
     Route: 042
     Dates: start: 20170513, end: 20170516
  17. ZOPICLONE [Concomitant]
     Active Substance: ZOPICLONE
     Indication: INSOMNIA
     Route: 048
     Dates: start: 20170518, end: 20170531
  18. ONDANSETRON [Concomitant]
     Active Substance: ONDANSETRON
     Indication: NAUSEA
     Route: 048
     Dates: start: 20170518, end: 20170531

REACTIONS (2)
  - Drug-induced liver injury [Fatal]
  - Systemic immune activation [Recovered/Resolved]

NARRATIVE: CASE EVENT DATE: 20170512
